FAERS Safety Report 7689583-6 (Version None)
Quarter: 2011Q3

REPORT INFORMATION
  Report Type: 
  Country: None (occurrence: None)
  Receive Date: 20110817
  Receipt Date: 20110808
  Transmission Date: 20111222
  Serious: Yes (Hospitalization, Other)
  Sender: FDA-Public Use
  Company Number: US-US-EMD SERONO, INC.-232248K04USA

PATIENT
  Sex: Female

DRUGS (4)
  1. REBIF [Suspect]
     Indication: MULTIPLE SCLEROSIS
     Route: 058
     Dates: start: 20030927, end: 20040105
  2. REBIF [Suspect]
     Dates: start: 20040426, end: 20040627
  3. REBIF [Suspect]
     Dates: start: 20051205, end: 20100927
  4. REBIF [Suspect]
     Route: 058
     Dates: start: 20110801

REACTIONS (3)
  - KIDNEY MALFORMATION [None]
  - ANAEMIA [None]
  - STAG HORN CALCULUS [None]
